FAERS Safety Report 15641717 (Version 1)
Quarter: 2018Q4

REPORT INFORMATION
  Report Type: Report from Study
  Country: None (occurrence: MX)
  Receive Date: 20181121
  Receipt Date: 20181121
  Transmission Date: 20190205
  Serious: Yes (Other)
  Sender: FDA-Public Use
  Company Number: MX-ABBVIE-18P-107-2562930-00

PATIENT
  Age: 54 Year
  Sex: Female

DRUGS (9)
  1. CAFFEINE W/CHLORPHENAMINE/PARACETAMOL/PHENYLE [Concomitant]
     Indication: RESPIRATORY DISORDER
  2. AMBROXOL [Concomitant]
     Active Substance: AMBROXOL
     Indication: PROPHYLAXIS
     Route: 048
  3. EPIVAL [Suspect]
     Active Substance: DIVALPROEX SODIUM
     Indication: PRODUCT USED FOR UNKNOWN INDICATION
     Route: 048
     Dates: start: 2015, end: 201809
  4. FLUMIL [Concomitant]
     Active Substance: ACETYLCYSTEINE
     Indication: RESPIRATORY DISORDER
  5. AMBROXOL [Concomitant]
     Active Substance: AMBROXOL
     Indication: RESPIRATORY DISORDER
  6. ANAPROX [Concomitant]
     Active Substance: NAPROXEN SODIUM
     Indication: PROPHYLAXIS
     Route: 048
  7. ANAPROX [Concomitant]
     Active Substance: NAPROXEN SODIUM
     Indication: RESPIRATORY DISORDER
  8. CAFFEINE W/CHLORPHENAMINE/PARACETAMOL/PHENYLE [Concomitant]
     Indication: PROPHYLAXIS
     Route: 048
  9. FLUMIL [Concomitant]
     Active Substance: ACETYLCYSTEINE
     Indication: PROPHYLAXIS
     Route: 048

REACTIONS (2)
  - Poisoning [Unknown]
  - Therapy cessation [Unknown]

NARRATIVE: CASE EVENT DATE: 201809
